FAERS Safety Report 23686681 (Version 1)
Quarter: 2024Q1

REPORT INFORMATION
  Report Type: Report from Study
  Country: SV (occurrence: SV)
  Receive Date: 20240329
  Receipt Date: 20240329
  Transmission Date: 20240410
  Serious: Yes (Other)
  Sender: FDA-Public Use
  Company Number: SV-AMGEN-SLVSL2024061124

PATIENT
  Age: 42 Year
  Sex: Female

DRUGS (16)
  1. PROLIA [Suspect]
     Active Substance: DENOSUMAB
     Indication: Metastases to bone
     Dosage: UNK, Q4WK
     Route: 065
     Dates: start: 201908
  2. VERZENIO [Suspect]
     Active Substance: ABEMACICLIB
     Indication: Breast cancer
     Dosage: 150 MILLIGRAM, Q12H
     Route: 048
     Dates: start: 20240106
  3. ABRAXANE [Suspect]
     Active Substance: PACLITAXEL
     Indication: Breast cancer metastatic
     Dosage: 1 CYCLE EVERY 21 DAYS
     Route: 065
     Dates: start: 20230908, end: 20231222
  4. METFORMIN [Concomitant]
     Active Substance: METFORMIN HYDROCHLORIDE
     Indication: Glucose tolerance impaired
     Dosage: UNK
     Dates: end: 202307
  5. DOXOPEG [Concomitant]
     Indication: Breast cancer
  6. EUTIROXIN [Concomitant]
     Dosage: 100 UNK, QD
  7. EZOLIUM [Concomitant]
     Dosage: 40 MILLIGRAM, QD
  8. DEBLAX [Concomitant]
     Dosage: UNK UNK, QMO
  9. VILDAGLIPTIN [Concomitant]
     Active Substance: VILDAGLIPTIN
     Dosage: 50 MILLIGRAM, QD
  10. Gabex [Concomitant]
     Dosage: UNK UNK, QD
  11. ZALDIAR [Concomitant]
     Active Substance: ACETAMINOPHEN\TRAMADOL HYDROCHLORIDE
     Indication: Pain
     Dosage: UNK UNK, AS NECESSARY
  12. PANTOPRAZOLE SODIUM [Concomitant]
     Active Substance: PANTOPRAZOLE SODIUM
     Dosage: UNK UNK, QD
  13. PREGABALIN [Concomitant]
     Active Substance: PREGABALIN
  14. ZOLEDRONIC ACID [Concomitant]
     Active Substance: ZOLEDRONIC ACID
     Dosage: UNK UNK, Q4WK
  15. VITAMIN C [Concomitant]
     Active Substance: ASCORBIC ACID
     Dosage: UNK UNK, Q4WK
     Route: 042
  16. FERINJECT [Concomitant]
     Active Substance: FERRIC CARBOXYMALTOSE

REACTIONS (10)
  - Metastases to central nervous system [Unknown]
  - Metastases to lung [Unknown]
  - Cerebrovascular accident [Recovered/Resolved]
  - Gastroenteritis rotavirus [Recovered/Resolved]
  - Off label use [Unknown]
  - Blood triglycerides increased [Not Recovered/Not Resolved]
  - Weight decreased [Recovered/Resolved]
  - Fatigue [Not Recovered/Not Resolved]
  - Anaemia [Not Recovered/Not Resolved]
  - Constipation [Not Recovered/Not Resolved]

NARRATIVE: CASE EVENT DATE: 20230101
